FAERS Safety Report 12393794 (Version 3)
Quarter: 2016Q3

REPORT INFORMATION
  Report Type: Spontaneous
  Country: US (occurrence: US)
  Receive Date: 20160523
  Receipt Date: 20160711
  Transmission Date: 20161109
  Serious: Yes (Hospitalization)
  Sender: FDA-Public Use
  Company Number: US-OTSUKA-2016_011028

PATIENT
  Sex: Female
  Weight: 48.98 kg

DRUGS (3)
  1. SAMSCA [Suspect]
     Active Substance: TOLVAPTAN
     Indication: BLOOD OSMOLARITY DECREASED
     Dosage: 15 MG, QD
     Route: 048
     Dates: start: 20140831
  2. SAMSCA [Suspect]
     Active Substance: TOLVAPTAN
     Indication: HYPONATRAEMIA
  3. FUROSEMIDE. [Concomitant]
     Active Substance: FUROSEMIDE
     Indication: OEDEMA PERIPHERAL
     Dosage: UNK
     Route: 065

REACTIONS (6)
  - Off label use [Unknown]
  - Drug dose omission [Unknown]
  - Asthenia [Recovered/Resolved]
  - Balance disorder [Recovered/Resolved]
  - Incorrect drug administration duration [Unknown]
  - Dyspnoea [Not Recovered/Not Resolved]
